FAERS Safety Report 23835409 (Version 4)
Quarter: 2024Q3

REPORT INFORMATION
  Report Type: Spontaneous
  Country: US (occurrence: US)
  Receive Date: 20240509
  Receipt Date: 20240801
  Transmission Date: 20241016
  Serious: No
  Sender: BOEHRINGER INGELHEIM
  Company Number: US-BoehringerIngelheim-2024-BI-026624

PATIENT
  Age: 54 Year
  Sex: Female

DRUGS (2)
  1. SPIRIVA RESPIMAT [Suspect]
     Active Substance: TIOTROPIUM BROMIDE
     Indication: Asthma
     Dosage: 2 PUFFS
     Dates: start: 2023
  2. LEVOTHYROXINE [Concomitant]
     Active Substance: LEVOTHYROXINE\LEVOTHYROXINE SODIUM
     Indication: Hypothyroidism

REACTIONS (5)
  - Cough [Recovered/Resolved]
  - Dyspnoea [Recovered/Resolved]
  - Wrong technique in product usage process [Unknown]
  - Dysphonia [Recovered/Resolved]
  - Candida infection [Recovered/Resolved]

NARRATIVE: CASE EVENT DATE: 20240401
